FAERS Safety Report 25024214 (Version 1)
Quarter: 2025Q1

REPORT INFORMATION
  Report Type: Report from Study
  Country: US (occurrence: US)
  Receive Date: 20250228
  Receipt Date: 20250228
  Transmission Date: 20250409
  Serious: Yes (Other)
  Sender: AMGEN
  Company Number: US-AMGEN-USASL2025019320

PATIENT
  Sex: Male

DRUGS (1)
  1. TEPEZZA [Suspect]
     Active Substance: TEPROTUMUMAB-TRBW
     Indication: Toxic goitre
     Dosage: UNK UNK, Q3WK
     Route: 040
     Dates: start: 20241101, end: 20250103

REACTIONS (3)
  - Type 2 diabetes mellitus [Unknown]
  - Adverse event [Unknown]
  - Hypoacusis [Unknown]
